FAERS Safety Report 9839826 (Version 1)
Quarter: 2014Q1

REPORT INFORMATION
  Report Type: Spontaneous
  Country: US (occurrence: US)
  Receive Date: 20140124
  Receipt Date: 20140124
  Transmission Date: 20141002
  Serious: Yes (Other)
  Sender: FDA-Public Use
  Company Number: US-BRISTOL-MYERS SQUIBB COMPANY-20043386

PATIENT
  Sex: Female

DRUGS (1)
  1. METFORMIN HCL [Suspect]

REACTIONS (8)
  - Cerebrovascular accident [Unknown]
  - Blood glucose increased [Unknown]
  - Retinopathy [Unknown]
  - Neuropathy peripheral [Unknown]
  - Migraine [Unknown]
  - Pain [Unknown]
  - Diarrhoea [Unknown]
  - Weight decreased [Unknown]
